FAERS Safety Report 5925141-9 (Version None)
Quarter: 2008Q4

REPORT INFORMATION
  Report Type: 
  Country: None (occurrence: None)
  Receive Date: 20081021
  Receipt Date: 20081010
  Transmission Date: 20090506
  Serious: Yes (Hospitalization, Other)
  Sender: FDA-Public Use
  Company Number: US-ROCHE-586880

PATIENT
  Age: 69 Year
  Sex: Female

DRUGS (1)
  1. VALIUM [Suspect]
     Indication: DRUG USE FOR UNKNOWN INDICATION
     Route: 065
     Dates: start: 19680101

REACTIONS (3)
  - HYPERTENSION [None]
  - ROAD TRAFFIC ACCIDENT [None]
  - THYROID CANCER [None]
